FAERS Safety Report 9741538 (Version 1)
Quarter: 2013Q4

REPORT INFORMATION
  Report Type: Report from Study
  Country: US (occurrence: US)
  Receive Date: 20131210
  Receipt Date: 20131210
  Transmission Date: 20140711
  Serious: Yes (Death)
  Sender: FDA-Public Use
  Company Number: US-ROCHE-1307329

PATIENT
  Sex: Male
  Weight: 66.28 kg

DRUGS (12)
  1. AVASTIN [Suspect]
     Indication: MALIGNANT NEOPLASM OF ORBIT
     Dosage: DOSE: 14/FEB/2011
     Route: 042
     Dates: start: 20101229
  2. AVASTIN [Suspect]
     Indication: LUNG NEOPLASM MALIGNANT
     Route: 042
     Dates: start: 20110124
  3. PLATINOL [Concomitant]
  4. ALIMTA [Concomitant]
  5. ALOXI [Concomitant]
     Route: 065
  6. TAXOTERE [Concomitant]
     Route: 042
  7. DECADRON [Concomitant]
     Route: 048
  8. LOVENOX [Concomitant]
     Route: 058
  9. LOVENOX [Concomitant]
     Route: 058
  10. ZOFRAN [Concomitant]
     Route: 065
     Dates: start: 20110124
  11. COMPAZINE [Concomitant]
     Route: 065
     Dates: start: 20110124
  12. NACL .9% [Concomitant]

REACTIONS (1)
  - Death [Fatal]
